FAERS Safety Report 5626688-5 (Version None)
Quarter: 2008Q1

REPORT INFORMATION
  Report Type: 
  Country: None (occurrence: None)
  Receive Date: 20080214
  Receipt Date: 20080207
  Transmission Date: 20080703
  Serious: Yes (Hospitalization)
  Sender: FDA-Public Use
  Company Number: JP-PFIZER INC-2008012687

PATIENT
  Age: 26 Year
  Sex: Female

DRUGS (2)
  1. AZULFIDINE EN-TABS [Suspect]
     Indication: RHEUMATOID ARTHRITIS
     Dosage: DAILY DOSE:1GRAM
     Route: 048
     Dates: start: 20071001, end: 20071201
  2. PREDONINE [Concomitant]
     Route: 048

REACTIONS (2)
  - LIVER DISORDER [None]
  - RASH [None]
